FAERS Safety Report 6966430-9 (Version None)
Quarter: 2010Q3

REPORT INFORMATION
  Report Type: 
  Country: None (occurrence: None)
  Receive Date: 20100906
  Receipt Date: 20100827
  Transmission Date: 20110219
  Serious: Yes (Other)
  Sender: FDA-Public Use
  Company Number: NL-BRISTOL-MYERS SQUIBB COMPANY-15261621

PATIENT
  Sex: Male

DRUGS (3)
  1. REYATAZ [Suspect]
     Indication: HIV INFECTION
     Dates: start: 20100727
  2. RITONAVIR [Suspect]
     Indication: HIV INFECTION
     Dates: start: 20100727
  3. TRUVADA [Suspect]
     Indication: HIV INFECTION
     Dates: start: 20100727

REACTIONS (5)
  - ARTHRALGIA [None]
  - CONJUNCTIVITIS [None]
  - PARAESTHESIA ORAL [None]
  - SWELLING FACE [None]
  - TONGUE DISCOLOURATION [None]
